FAERS Safety Report 4919587-5 (Version None)
Quarter: 2006Q1

REPORT INFORMATION
  Report Type: 
  Country: None (occurrence: None)
  Receive Date: 20060222
  Receipt Date: 20051011
  Transmission Date: 20060701
  Serious: Yes (Hospitalization, Other)
  Sender: FDA-Public Use
  Company Number: US-MERCK-0510USA06497

PATIENT
  Age: 44 Year
  Sex: Male
  Weight: 107 kg

DRUGS (3)
  1. VIOXX [Suspect]
     Indication: MUSCLE STRAIN
     Route: 048
     Dates: end: 20050101
  2. VIOXX [Suspect]
     Indication: NECK PAIN
     Route: 048
     Dates: end: 20050101
  3. ASPIRIN [Concomitant]
     Route: 065

REACTIONS (13)
  - ANGINA PECTORIS [None]
  - ANGIOPATHY [None]
  - ARRHYTHMIA [None]
  - CARDIOVASCULAR DISORDER [None]
  - CEREBROVASCULAR ACCIDENT [None]
  - FACIAL PAIN [None]
  - HYPERTENSION [None]
  - LIPIDS ABNORMAL [None]
  - MYOCARDIAL INFARCTION [None]
  - ORGAN FAILURE [None]
  - PULMONARY EMBOLISM [None]
  - THROMBOSIS [None]
  - TRANSIENT ISCHAEMIC ATTACK [None]
